FAERS Safety Report 4836270-5 (Version None)
Quarter: 2005Q4

REPORT INFORMATION
  Report Type: 
  Country: None (occurrence: None)
  Receive Date: 20051123
  Receipt Date: 20050620
  Transmission Date: 20060501
  Serious: Yes (Other)
  Sender: FDA-Public Use
  Company Number: PHBS2005BR08828

PATIENT
  Age: 18 Year
  Sex: Female

DRUGS (2)
  1. OMEPRAZOLE [Concomitant]
     Indication: GASTRITIS
     Dosage: UNK, QD
     Route: 048
  2. ZELMAC [Suspect]
     Indication: IRRITABLE BOWEL SYNDROME
     Dosage: 12 MG, QD
     Route: 048
     Dates: start: 20050601, end: 20050613

REACTIONS (2)
  - DIARRHOEA [None]
  - PHARMACEUTICAL PRODUCT COMPLAINT [None]
